FAERS Safety Report 16561390 (Version 7)
Quarter: 2020Q2

REPORT INFORMATION
  Report Type: Spontaneous
  Country: AU (occurrence: AU)
  Receive Date: 20190711
  Receipt Date: 20200512
  Transmission Date: 20200713
  Serious: Yes (Life-Threatening, Hospitalization)
  Sender: FDA-Public Use
  Company Number: AU-CELGENEUS-AUS-20190703463

PATIENT
  Age: 68 Year
  Sex: Female
  Weight: 43.7 kg

DRUGS (29)
  1. ABRAXANE [Suspect]
     Active Substance: PACLITAXEL
     Route: 065
     Dates: start: 20190604, end: 20190604
  2. ABRAXANE [Suspect]
     Active Substance: PACLITAXEL
     Route: 065
     Dates: start: 20190611, end: 20190611
  3. ABRAXANE [Suspect]
     Active Substance: PACLITAXEL
     Indication: PANCREATIC CARCINOMA METASTATIC
     Route: 065
     Dates: start: 20190507, end: 20190507
  4. ABRAXANE [Suspect]
     Active Substance: PACLITAXEL
     Route: 065
     Dates: start: 20190618, end: 20190618
  5. ABRAXANE [Suspect]
     Active Substance: PACLITAXEL
     Route: 065
     Dates: start: 20190827, end: 20190827
  6. GEMCITABINE. [Concomitant]
     Active Substance: GEMCITABINE
     Route: 065
     Dates: start: 20190813, end: 20190813
  7. LYRICA [Concomitant]
     Active Substance: PREGABALIN
     Indication: ABDOMINAL PAIN
     Dosage: 50 MILLIGRAM
     Route: 048
     Dates: start: 201905, end: 20190603
  8. ABRAXANE [Suspect]
     Active Substance: PACLITAXEL
     Route: 065
     Dates: start: 20190702, end: 20190702
  9. PANCREATIN [Concomitant]
     Active Substance: PANCRELIPASE
     Indication: PANCREATIC FAILURE
     Route: 048
     Dates: start: 201903
  10. DOCUSATE SODIUM. [Concomitant]
     Active Substance: DOCUSATE SODIUM
     Indication: CONSTIPATION PROPHYLAXIS
     Route: 048
     Dates: start: 201903
  11. OXYCODONE HYDROCHLORIDE. [Concomitant]
     Active Substance: OXYCODONE HYDROCHLORIDE
     Indication: ABDOMINAL PAIN
     Route: 048
     Dates: start: 201903
  12. POTASSIUM [Concomitant]
     Active Substance: POTASSIUM
     Indication: HYPOKALAEMIA
     Dosage: 6 DOSAGE FORMS
     Route: 048
     Dates: start: 20190521
  13. DEXAMETHASONE. [Concomitant]
     Active Substance: DEXAMETHASONE
     Indication: VOMITING
     Route: 048
     Dates: start: 20190612
  14. LYRICA [Concomitant]
     Active Substance: PREGABALIN
     Dosage: 50 MILLIGRAM
     Route: 048
     Dates: start: 20190604
  15. GEMCITABINE. [Concomitant]
     Active Substance: GEMCITABINE
     Route: 065
     Dates: start: 20190521, end: 20190521
  16. GEMCITABINE. [Concomitant]
     Active Substance: GEMCITABINE
     Route: 065
     Dates: start: 20190618, end: 20190618
  17. GEMCITABINE. [Concomitant]
     Active Substance: GEMCITABINE
     Route: 065
     Dates: start: 20190827, end: 20190827
  18. PANTOPRAZOLE [Concomitant]
     Active Substance: PANTOPRAZOLE
     Indication: GASTROOESOPHAGEAL REFLUX DISEASE
     Dosage: 40 MILLIGRAM
     Route: 048
     Dates: start: 201903
  19. COLOXYL AND SENNA [Concomitant]
     Indication: CONSTIPATION PROPHYLAXIS
     Route: 048
     Dates: start: 201903
  20. ABRAXANE [Suspect]
     Active Substance: PACLITAXEL
     Route: 065
     Dates: start: 20190521, end: 20190521
  21. ABRAXANE [Suspect]
     Active Substance: PACLITAXEL
     Route: 065
     Dates: start: 20190813, end: 20190813
  22. GEMCITABINE. [Concomitant]
     Active Substance: GEMCITABINE
     Route: 065
     Dates: start: 20190611, end: 20190611
  23. MIRTAZAPINE. [Concomitant]
     Active Substance: MIRTAZAPINE
     Indication: DECREASED APPETITE
     Dosage: 30 MILLIGRAM
     Route: 048
     Dates: start: 20190523
  24. DEXAMETHASONE. [Concomitant]
     Active Substance: DEXAMETHASONE
     Indication: NAUSEA
  25. GEMCITABINE. [Concomitant]
     Active Substance: GEMCITABINE
     Indication: PANCREATIC CARCINOMA METASTATIC
     Route: 065
     Dates: start: 20190507, end: 20190507
  26. GEMCITABINE. [Concomitant]
     Active Substance: GEMCITABINE
     Route: 065
     Dates: start: 20190604, end: 20190604
  27. GEMCITABINE. [Concomitant]
     Active Substance: GEMCITABINE
     Route: 065
     Dates: start: 20190702, end: 20190702
  28. CYCLIZINE [Concomitant]
     Active Substance: CYCLIZINE
     Indication: NAUSEA
     Route: 048
     Dates: start: 201903
  29. CYCLIZINE [Concomitant]
     Active Substance: CYCLIZINE
     Dosage: 25 MILLIGRAM
     Route: 048
     Dates: start: 20190522

REACTIONS (3)
  - Gastrointestinal haemorrhage [Recovered/Resolved]
  - Disseminated intravascular coagulation [Recovered/Resolved]
  - Sepsis [Recovered/Resolved]

NARRATIVE: CASE EVENT DATE: 20190704
